FAERS Safety Report 9509743 (Version 1)
Quarter: 2013Q1

REPORT INFORMATION
  Report Type: Spontaneous
  Country: US (occurrence: None)
  Receive Date: 20130305
  Receipt Date: 20130305
  Transmission Date: 20140127
  Serious: Yes (Other)
  Sender: FDA-Public Use
  Company Number: 163-21880-2052255

PATIENT
  Age: 76 Year
  Sex: Female
  Weight: 61.96 kg

DRUGS (4)
  1. REVLIMID [Suspect]
     Indication: PLASMA CELL MYELOMA
     Dosage: 1 IN 1 D
     Route: 048
  2. ASA (ACETYLSALICYLIC ACID) (UNKNOWN) [Concomitant]
  3. DEXAMETHASONE (DEXAMETHASONE) (UNKNOWN) [Concomitant]
  4. LOMOTIL (LOMOTIL) )UNKNOWN) [Concomitant]

REACTIONS (2)
  - Thrombosis [None]
  - Diarrhoea [None]
